FAERS Safety Report 5024961-5 (Version None)
Quarter: 2006Q2

REPORT INFORMATION
  Report Type: 
  Country: None (occurrence: None)
  Receive Date: 20060607
  Receipt Date: 20060531
  Transmission Date: 20061013
  Serious: Yes (Hospitalization)
  Sender: FDA-Public Use
  Company Number: MEDI-0004490

PATIENT
  Age: 19 Month
  Sex: Male

DRUGS (9)
  1. SYNAGIS [Suspect]
     Indication: ANTIVIRAL PROPHYLAXIS
     Dosage: SEE IMAGE
     Route: 030
     Dates: start: 20031213, end: 20040223
  2. SYNAGIS [Suspect]
     Indication: ANTIVIRAL PROPHYLAXIS
     Dosage: SEE IMAGE
     Route: 030
     Dates: start: 20031213
  3. SYNAGIS [Suspect]
     Indication: ANTIVIRAL PROPHYLAXIS
     Dosage: SEE IMAGE
     Route: 030
     Dates: start: 20040114
  4. FERRIC PYROPHOSPHATE                     (FERRIC PYROPHOSPHATE) [Concomitant]
  5. SODIUM CROMOGLICATE     (CROMOGLICATE SODIUM) [Concomitant]
  6. PROCATEROL HCL [Concomitant]
  7. BUFEXAMAC (BUFEXAMAC) [Concomitant]
  8. L-CARBOCISTEINE      (CARBOCISTEINE LYSINE) [Concomitant]
  9. CHLORPHENIRAMINE MALEATE [Concomitant]

REACTIONS (1)
  - ASTHMA [None]
